FAERS Safety Report 8611676-7 (Version None)
Quarter: 2012Q3

REPORT INFORMATION
  Report Type: 
  Country: None (occurrence: None)
  Receive Date: 20120822
  Receipt Date: 20120813
  Transmission Date: 20120928
  Serious: Yes (Hospitalization)
  Sender: FDA-Public Use
  Company Number: US-ASTRAZENECA-2012SE41428

PATIENT
  Age: 82 Year
  Sex: Female

DRUGS (16)
  1. VITAMIN D [Concomitant]
  2. ADVAIR DISKUS 100/50 [Concomitant]
  3. LISINOPRIL [Concomitant]
     Route: 048
  4. NIFEDIPINE [Concomitant]
  5. SPIRIVA [Concomitant]
     Dosage: TWO PUFFS IN MORNING
  6. REMERON [Concomitant]
  7. CRESTOR [Suspect]
     Indication: BLOOD CHOLESTEROL ABNORMAL
     Route: 048
     Dates: start: 20120201, end: 20120301
  8. ALBUTEROL [Concomitant]
     Dosage: ALBUTEROL ATOMIZER THREE TIMES A DAY
  9. NEXIUM [Suspect]
     Route: 048
  10. ALLOPURINOL [Concomitant]
  11. SPIRONOLACTONE [Concomitant]
  12. ALBUTEROL [Concomitant]
  13. ASPIRIN [Concomitant]
  14. PERSANTINE [Concomitant]
  15. CETAPRIL [Concomitant]
  16. PREDNISONE TAB [Concomitant]

REACTIONS (9)
  - ABDOMINAL PAIN [None]
  - DECREASED APPETITE [None]
  - NAUSEA [None]
  - DIARRHOEA [None]
  - PYREXIA [None]
  - LIVER FUNCTION TEST ABNORMAL [None]
  - PANCREATITIS ACUTE [None]
  - VOMITING [None]
  - DEHYDRATION [None]
